FAERS Safety Report 16081103 (Version 1)
Quarter: 2019Q1

REPORT INFORMATION
  Report Type: Spontaneous
  Country: ES (occurrence: ES)
  Receive Date: 20190316
  Receipt Date: 20190316
  Transmission Date: 20190418
  Serious: Yes (Hospitalization)
  Sender: FDA-Public Use
  Company Number: ES-ACCORD-113116

PATIENT
  Age: 75 Year
  Sex: Female
  Weight: 60 kg

DRUGS (6)
  1. CO-DIOVAN [Concomitant]
     Active Substance: HYDROCHLOROTHIAZIDE\VALSARTAN
     Dosage: 1-0-0, 160 MG / 12.5 MG FILM-COATED TABLETS
  2. OMEPRAZOL (2141A) [Concomitant]
     Active Substance: OMEPRAZOLE
  3. NOLOTIL [Concomitant]
     Dosage: OCASIONAL
  4. CAPECITABINE. [Suspect]
     Active Substance: CAPECITABINE
     Indication: ADENOCARCINOMA OF COLON
     Dosage: 5 CYCLICAL
     Route: 048
     Dates: start: 20180721, end: 201810
  5. AMARYL [Concomitant]
     Active Substance: GLIMEPIRIDE
     Dosage: 0-1/2-0, 4 MG TABLETS
  6. ORFIDAL [Concomitant]
     Active Substance: LORAZEPAM
     Dosage: 0-0-1

REACTIONS (3)
  - Colitis [Recovering/Resolving]
  - Abdominal discomfort [Recovering/Resolving]
  - Pyrexia [Recovering/Resolving]

NARRATIVE: CASE EVENT DATE: 20181020
